FAERS Safety Report 15016118 (Version 1)
Quarter: 2018Q2

REPORT INFORMATION
  Report Type: Report from Study
  Country: JP (occurrence: JP)
  Receive Date: 20180615
  Receipt Date: 20180615
  Transmission Date: 20180711
  Serious: Yes (Death)
  Sender: FDA-Public Use
  Company Number: JP-REGULIS-2049467

PATIENT
  Age: 69 Year
  Sex: Female

DRUGS (9)
  1. METHYLENE BLUE INTRAVENOUS INJECTION 50MG ^DAIICHI SANKYO^ (METHYLTHIONINIUM CHLORIDE): FORMULATION INJECTION; DOSAGE 100 MG [Suspect]
     Active Substance: METHYLENE BLUE
     Indication: METHAEMOGLOBINAEMIA
     Route: 042
     Dates: start: 20170606
  2. SODIUM CHLORIDE. [Concomitant]
     Active Substance: SODIUM CHLORIDE
     Dates: start: 20170601, end: 20170605
  3. ALBUMIN (HUMAN) [Concomitant]
     Active Substance: ALBUMIN HUMAN
     Dates: start: 20170601, end: 20170603
  4. RBC (SACCHARATED IRON OXIDE) [Concomitant]
     Dates: start: 20170601, end: 20170605
  5. CARBAZOCHROME SODIUM SULFONATE [Concomitant]
     Active Substance: CARBAZOCHROME SODIUM SULFONATE
     Dates: start: 20170602, end: 20170605
  6. WYSTAL (CEFOPERAZONE SODIUM, SULBACTAM SODIUM) [Concomitant]
     Active Substance: CEFOPERAZONE SODIUM\SULBACTAM SODIUM
     Dates: start: 20170601, end: 20170605
  7. CANCIDAS [Concomitant]
     Active Substance: CASPOFUNGIN ACETATE
     Dates: start: 20170601, end: 20170605
  8. TEICOPLANIN [Concomitant]
     Active Substance: TEICOPLANIN
     Dates: start: 20170601, end: 20170605
  9. TRANEXAMIC ACID. [Concomitant]
     Active Substance: TRANEXAMIC ACID
     Dates: start: 20170602, end: 20170605

REACTIONS (1)
  - Cardiac arrest [Fatal]

NARRATIVE: CASE EVENT DATE: 20170606
